FAERS Safety Report 7617318-1 (Version None)
Quarter: 2011Q3

REPORT INFORMATION
  Report Type: 
  Country: None (occurrence: None)
  Receive Date: 20110718
  Receipt Date: 20110712
  Transmission Date: 20111222
  Serious: Yes (Death)
  Sender: FDA-Public Use
  Company Number: PHHY2011BR62382

PATIENT
  Sex: Female

DRUGS (2)
  1. DIOVAN [Suspect]
     Dosage: 320 MG, UNK
  2. EXFORGE [Suspect]
     Dosage: 320 MG OF VALSARTAN AND 10 MG OF AMLODIPINE BESYLATE

REACTIONS (1)
  - DEATH [None]
